FAERS Safety Report 9360623 (Version 2)
Quarter: 2013Q4

REPORT INFORMATION
  Report Type: Spontaneous
  Country: FR (occurrence: FR)
  Receive Date: 20130621
  Receipt Date: 20131106
  Transmission Date: 20140711
  Serious: Yes (Hospitalization)
  Sender: FDA-Public Use
  Company Number: FR-VERTEX PHARMACEUTICALS INC-2013-007267

PATIENT
  Age: 64 Year
  Sex: Male

DRUGS (10)
  1. INCIVO [Suspect]
     Indication: HEPATITIS C
     Dosage: 2250 MG, QD
     Route: 048
     Dates: start: 20130202, end: 20130430
  2. PEGINTERFERON ALFA 2A [Suspect]
     Indication: HEPATITIS C
     Dosage: 180 ?G, QW
     Route: 058
     Dates: start: 20130202, end: 20130509
  3. RIBAVIRIN [Suspect]
     Indication: HEPATITIS C
     Dosage: 1000 MG, QD
     Route: 048
     Dates: start: 20130202
  4. RIBAVIRIN [Suspect]
     Dosage: 600 MG, QD
     Route: 048
     Dates: start: 20130312
  5. RIBAVIRIN [Suspect]
     Dosage: 400 MG, QD
     Route: 048
     Dates: start: 20130326, end: 20130509
  6. LEXOMIL [Concomitant]
     Indication: ANXIETY
     Dosage: UNK, QD
     Route: 048
     Dates: start: 20130202, end: 20130308
  7. LEVOTHYROX [Concomitant]
     Indication: HYPOTHYROIDISM
     Dosage: 1000 ?G, QD
     Route: 048
  8. KEPPRA [Concomitant]
     Indication: EPILEPSY
     Dosage: 1500 MG, UNK
     Route: 048
     Dates: start: 201205
  9. ZOLOFT [Concomitant]
     Indication: DEPRESSION
     Dosage: 100 MG, QD
     Dates: start: 201301
  10. OGAST [Concomitant]
     Indication: GASTRITIS
     Dosage: 15 MG, QD
     Dates: start: 201206

REACTIONS (2)
  - Sepsis [Unknown]
  - Anaemia [Recovered/Resolved]
